FAERS Safety Report 4567856-3 (Version None)
Quarter: 2005Q1

REPORT INFORMATION
  Report Type: 
  Country: None (occurrence: None)
  Receive Date: 20050202
  Receipt Date: 20041111
  Transmission Date: 20050727
  Serious: No
  Sender: FDA-Public Use
  Company Number: US-GLAXOSMITHKLINE-A0533588A

PATIENT
  Sex: Female

DRUGS (3)
  1. AVANDAMET [Suspect]
  2. AVANDIA [Suspect]
  3. NO CONCURRENT MEDICATION [Concomitant]

REACTIONS (1)
  - DRY SKIN [None]
